FAERS Safety Report 8775043 (Version 1)
Quarter: 2012Q4

REPORT INFORMATION
  Report Type: 
  Country: NL (occurrence: NL)
  Receive Date: 20120910
  Receipt Date: 20120910
  Transmission Date: 20130627
  Serious: Yes (Other)
  Sender: FDA-Public Use
  Company Number: PHHY2012NL078081

PATIENT
  Sex: Female

DRUGS (5)
  1. ACLASTA [Suspect]
     Indication: OSTEOPOROSIS
     Dosage: 5 mg/ year, UNK
     Route: 042
     Dates: start: 20110811
  2. ACLASTA [Suspect]
     Dosage: 5 mg/ year, UNK
     Route: 042
     Dates: start: 20120907
  3. CALCICHEW [Concomitant]
     Dosage: 500mg/400 IU x1x1
  4. VITAMIN B12 [Concomitant]
     Dosage: 10ugx1x1
  5. PARACETAMOL [Concomitant]
     Dosage: 500mg when needed

REACTIONS (1)
  - Wrist fracture [Recovered/Resolved]
